FAERS Safety Report 8465564-X (Version None)
Quarter: 2012Q2

REPORT INFORMATION
  Report Type: 
  Country: None (occurrence: None)
  Receive Date: 20120626
  Receipt Date: 20120613
  Transmission Date: 20120825
  Serious: Yes (Life-Threatening, Hospitalization, Other)
  Sender: FDA-Public Use
  Company Number: DE-UCBSA-059669

PATIENT
  Age: 54 Year
  Sex: Female
  Weight: 114 kg

DRUGS (10)
  1. FEXOFENADIN [Concomitant]
     Indication: PRURITUS
     Route: 048
     Dates: start: 20110801
  2. METHOTREXATE [Concomitant]
     Route: 058
     Dates: start: 20011206, end: 20011220
  3. RITUXIMAB [Concomitant]
     Indication: RHEUMATOID ARTHRITIS
     Route: 042
     Dates: start: 20111115
  4. METHOTREXATE [Concomitant]
     Indication: RHEUMATOID ARTHRITIS
     Route: 048
     Dates: start: 19930101, end: 19930101
  5. PREDNISOLONE [Concomitant]
     Indication: RHEUMATOID ARTHRITIS
     Route: 048
     Dates: start: 20110906, end: 20111105
  6. CIMZIA [Suspect]
     Indication: RHEUMATOID ARTHRITIS
     Dosage: NO. OF DOSES RECEIVED : 8
     Route: 058
     Dates: start: 20110611, end: 20111105
  7. TRAMADOL HYDROCHLORIDE [Concomitant]
     Indication: RHEUMATOID ARTHRITIS
     Dosage: AS NECESSARY (PRN)
     Route: 048
     Dates: start: 20111108
  8. METHOTREXATE [Concomitant]
     Route: 048
     Dates: start: 20111019
  9. PREDNISOLONE [Concomitant]
     Route: 048
     Dates: start: 20111106
  10. DIPYRONE TAB [Concomitant]
     Indication: RHEUMATOID ARTHRITIS
     Dosage: AS NECESSARY (PRN)
     Route: 048
     Dates: start: 20111108

REACTIONS (2)
  - OVARIAN CANCER METASTATIC [None]
  - BREAST CANCER [None]
